FAERS Safety Report 6822808-5 (Version None)
Quarter: 2010Q3

REPORT INFORMATION
  Report Type: 
  Country: None (occurrence: None)
  Receive Date: 20100706
  Receipt Date: 20100706
  Transmission Date: 20110219
  Serious: Yes (Hospitalization, Disabling)
  Sender: FDA-Public Use
  Company Number: None

PATIENT
  Age: 23 Year
  Sex: Female
  Weight: 68.0396 kg

DRUGS (1)
  1. NEXT CHOICE -LEVONORGESTREL- 0.75MG TABLETS WATSON PHARMA INC [Suspect]
     Indication: CONTRACEPTION
     Dosage: 2 TABLETS 1 TAB PER 12 HOURS PO
     Route: 048
     Dates: start: 20100430, end: 20100501

REACTIONS (2)
  - ECTOPIC PREGNANCY [None]
  - PREGNANCY ON CONTRACEPTIVE [None]
